FAERS Safety Report 7541354-7 (Version None)
Quarter: 2011Q2

REPORT INFORMATION
  Report Type: 
  Country: None (occurrence: None)
  Receive Date: 20110613
  Receipt Date: 20110602
  Transmission Date: 20111010
  Serious: Yes (Disabling)
  Sender: FDA-Public Use
  Company Number: GB-AMGEN-GBRSP2011029074

PATIENT
  Age: 56 Year
  Sex: Male
  Weight: 64.8 kg

DRUGS (4)
  1. ENBREL [Suspect]
     Indication: ANKYLOSING SPONDYLITIS
     Dosage: 50 MG, WEEKLY
     Route: 058
     Dates: start: 20100801, end: 20110304
  2. FINASTERIDE [Concomitant]
     Dosage: 5 MG, 1X/DAY
     Route: 048
  3. TAMSULOSIN HYDROCHLORIDE [Concomitant]
     Dosage: 400 UG, 1X/DAY
     Route: 048
  4. BISOPROLOL FUMARATE [Concomitant]
     Dosage: 2.5 MG, 1X/DAY
     Route: 048

REACTIONS (3)
  - PARAESTHESIA [None]
  - CERVICAL MYELOPATHY [None]
  - COORDINATION ABNORMAL [None]
